FAERS Safety Report 7109124-1 (Version None)
Quarter: 2010Q4

REPORT INFORMATION
  Report Type: 
  Country: None (occurrence: None)
  Receive Date: 20101117
  Receipt Date: 20101111
  Transmission Date: 20110411
  Serious: Yes (Other)
  Sender: FDA-Public Use
  Company Number: US-PFIZER INC-2010120875

PATIENT
  Sex: Male
  Weight: 106.12 kg

DRUGS (1)
  1. SUTENT [Suspect]
     Indication: MALIGNANT NEOPLASM OF RENAL PELVIS
     Dosage: 50 MG, DAILY, 28 DAYS ON AND 14 DAYS OFF
     Route: 048
     Dates: start: 20100830

REACTIONS (1)
  - JAUNDICE [None]
